FAERS Safety Report 12918139 (Version 2)
Quarter: 2016Q4

REPORT INFORMATION
  Report Type: Spontaneous
  Country: JP (occurrence: JP)
  Receive Date: 20161107
  Receipt Date: 20161226
  Transmission Date: 20170207
  Serious: Yes (Life-Threatening, Hospitalization, Other)
  Sender: FDA-Public Use
  Company Number: JP-SUN PHARMACEUTICAL INDUSTRIES LTD-2016RR-127275

PATIENT
  Age: 49 Year
  Sex: Male

DRUGS (2)
  1. IRINOTECAN [Suspect]
     Active Substance: IRINOTECAN
     Indication: SMALL CELL LUNG CANCER
     Dosage: 60 MG/M2, UNK
     Route: 065
  2. CISPLATIN. [Suspect]
     Active Substance: CISPLATIN
     Indication: SMALL CELL LUNG CANCER
     Dosage: 60 MG/M2, UNK
     Route: 065

REACTIONS (6)
  - Septic shock [Recovered/Resolved]
  - Diarrhoea [Unknown]
  - Disseminated intravascular coagulation [Unknown]
  - Hyponatraemia [Unknown]
  - Antidiuretic hormone abnormality [Unknown]
  - Pantoea agglomerans infection [Recovered/Resolved]
